FAERS Safety Report 4866868-X (Version None)
Quarter: 2005Q4

REPORT INFORMATION
  Report Type: 
  Country: None (occurrence: None)
  Receive Date: 20051222
  Receipt Date: 20051208
  Transmission Date: 20060501
  Serious: Yes (Other)
  Sender: FDA-Public Use
  Company Number: HQWYE630818NOV05

PATIENT
  Age: 25 Year
  Sex: Male

DRUGS (5)
  1. RAPAMUNE [Suspect]
     Indication: PROPHYLAXIS AGAINST TRANSPLANT REJECTION
     Dosage: 2 MG 1X PER 1 DAY ORAL
     Route: 048
     Dates: start: 20041203
  2. CYCLOSPORINE [Concomitant]
  3. PREDNISONE [Concomitant]
  4. NIFEDIPINE [Concomitant]
  5. BACTRIM [Concomitant]

REACTIONS (1)
  - KIDNEY TRANSPLANT REJECTION [None]
